FAERS Safety Report 13578077 (Version 11)
Quarter: 2020Q3

REPORT INFORMATION
  Report Type: Report from Study
  Country: None (occurrence: FR)
  Receive Date: 20170524
  Receipt Date: 20191025
  Transmission Date: 20201105
  Serious: Yes (Hospitalization, Other)
  Sender: FDA-Public Use
  Company Number: FR-ABBVIE-17P-056-1965707-00

PATIENT
  Age: 64 Year
  Sex: Female
  Weight: 46 kg

DRUGS (48)
  1. SMECTA [Concomitant]
     Active Substance: MONTMORILLONITE
     Indication: DIARRHOEA
     Route: 048
     Dates: start: 20170421, end: 20170423
  2. ULTIBRO [Concomitant]
     Active Substance: GLYCOPYRRONIUM\INDACATEROL
     Indication: CHRONIC OBSTRUCTIVE PULMONARY DISEASE
     Route: 055
  3. KALEORID [Concomitant]
     Active Substance: POTASSIUM CHLORIDE
     Route: 042
     Dates: start: 20170428, end: 20170428
  4. ZARZIO [Concomitant]
     Active Substance: FILGRASTIM
     Indication: NEUTROPENIA
     Route: 042
     Dates: start: 20170602, end: 20170606
  5. PLITICAN [Concomitant]
     Active Substance: ALIZAPRIDE HYDROCHLORIDE
     Route: 042
     Dates: start: 20170528, end: 20170528
  6. TAVANIC [Concomitant]
     Active Substance: LEVOFLOXACIN
     Route: 042
     Dates: start: 20170527, end: 20170601
  7. ONDANSETRON [Concomitant]
     Active Substance: ONDANSETRON
     Route: 042
     Dates: start: 20170427, end: 20170428
  8. RED BLOOD CELLS [Concomitant]
     Active Substance: HUMAN RED BLOOD CELL
     Route: 042
     Dates: start: 20170424, end: 20170424
  9. RED BLOOD CELLS [Concomitant]
     Active Substance: HUMAN RED BLOOD CELL
     Route: 042
     Dates: start: 20170506, end: 20170506
  10. RED BLOOD CELLS [Concomitant]
     Active Substance: HUMAN RED BLOOD CELL
     Route: 042
     Dates: start: 20170518, end: 20170518
  11. RED BLOOD CELLS [Concomitant]
     Active Substance: HUMAN RED BLOOD CELL
     Route: 042
     Dates: start: 20170602, end: 20170602
  12. PLATELETS [Concomitant]
     Active Substance: HUMAN PLATELET, ALLOGENIC
     Route: 042
     Dates: start: 20170506, end: 20170506
  13. PRIMPERAN [Concomitant]
     Active Substance: METOCLOPRAMIDE HYDROCHLORIDE
     Indication: NAUSEA
     Route: 042
     Dates: start: 20170422, end: 20170422
  14. FUROSEMIDE. [Concomitant]
     Active Substance: FUROSEMIDE
     Indication: URINARY RETENTION
     Route: 042
     Dates: start: 20170507, end: 20170507
  15. IDASANUTLIN. [Suspect]
     Active Substance: IDASANUTLIN
     Indication: ACUTE MYELOID LEUKAEMIA
     Dosage: MOST RECENT DOSE PRIOR TO AE ONSET 24 APR  17
     Route: 048
     Dates: start: 20170420
  16. SMECTA [Concomitant]
     Active Substance: MONTMORILLONITE
     Route: 048
     Dates: start: 20170506, end: 20170509
  17. LOPERAMIDE [Concomitant]
     Active Substance: LOPERAMIDE
     Indication: DIARRHOEA
     Route: 048
     Dates: start: 20170420, end: 20170420
  18. KALEORID [Concomitant]
     Active Substance: POTASSIUM CHLORIDE
     Indication: HYPOKALAEMIA
     Route: 048
     Dates: start: 20170426, end: 20170426
  19. PLITICAN [Concomitant]
     Active Substance: ALIZAPRIDE HYDROCHLORIDE
     Route: 042
     Dates: start: 20170602, end: 20170602
  20. SMECTA [Concomitant]
     Active Substance: MONTMORILLONITE
     Route: 048
     Dates: start: 20170425
  21. ALLOPURINOL. [Concomitant]
     Active Substance: ALLOPURINOL
     Indication: PROPHYLAXIS
     Route: 048
     Dates: start: 20170404
  22. ONDANSETRON [Concomitant]
     Active Substance: ONDANSETRON
     Route: 042
     Dates: start: 20170426, end: 20170426
  23. PLATELETS [Concomitant]
     Active Substance: HUMAN PLATELET, ALLOGENIC
     Indication: THROMBOCYTOPENIA
     Route: 042
     Dates: start: 20170425, end: 20170425
  24. PRIMPERAN [Concomitant]
     Active Substance: METOCLOPRAMIDE HYDROCHLORIDE
     Route: 042
     Dates: start: 20170423, end: 20170423
  25. PRIMPERAN [Concomitant]
     Active Substance: METOCLOPRAMIDE HYDROCHLORIDE
     Route: 042
     Dates: start: 20170424, end: 20170424
  26. ONDANSETRON [Concomitant]
     Active Substance: ONDANSETRON
     Route: 042
     Dates: start: 20170425, end: 20170425
  27. PLATELETS [Concomitant]
     Active Substance: HUMAN PLATELET, ALLOGENIC
     Route: 042
     Dates: start: 20170420, end: 20170420
  28. PLATELETS [Concomitant]
     Active Substance: HUMAN PLATELET, ALLOGENIC
     Route: 042
     Dates: start: 20170517, end: 20170517
  29. KALEORID [Concomitant]
     Active Substance: POTASSIUM CHLORIDE
     Route: 042
     Dates: start: 20170427, end: 20170427
  30. PANTOPRAZOLE [Concomitant]
     Active Substance: PANTOPRAZOLE
     Indication: PRODUCT USED FOR UNKNOWN INDICATION
     Route: 048
     Dates: start: 20170509, end: 20170510
  31. PLITICAN [Concomitant]
     Active Substance: ALIZAPRIDE HYDROCHLORIDE
     Indication: NAUSEA
     Route: 042
     Dates: start: 20170525, end: 20170525
  32. HYDROCORTISONE. [Concomitant]
     Active Substance: HYDROCORTISONE
     Indication: PRODUCT USED FOR UNKNOWN INDICATION
     Route: 042
     Dates: start: 20170526, end: 20170601
  33. TIORFAN [Concomitant]
     Active Substance: RACECADOTRIL
     Route: 048
     Dates: start: 20170520, end: 20170520
  34. ONDANSETRON [Concomitant]
     Active Substance: ONDANSETRON
     Indication: NAUSEA
     Route: 042
     Dates: start: 20170420, end: 20170422
  35. PLATELETS [Concomitant]
     Active Substance: HUMAN PLATELET, ALLOGENIC
     Route: 042
     Dates: start: 20170522, end: 20170522
  36. PLATELETS [Concomitant]
     Active Substance: HUMAN PLATELET, ALLOGENIC
     Route: 042
     Dates: start: 20170526, end: 20170526
  37. LARGACTIL [Concomitant]
     Active Substance: CHLORPROMAZINE
     Indication: NAUSEA
     Route: 042
     Dates: start: 20170425, end: 20170428
  38. PLITICAN [Concomitant]
     Active Substance: ALIZAPRIDE HYDROCHLORIDE
     Route: 042
     Dates: start: 20170529, end: 20170601
  39. VENETOCLAX. [Suspect]
     Active Substance: VENETOCLAX
     Indication: ACUTE MYELOID LEUKAEMIA
     Dosage: MOST RECENT DOSE PRIOR TO AE ONSET 04 MAY 2017 AND 17 MAY 2017
     Route: 048
     Dates: start: 20170420
  40. TIORFAN [Concomitant]
     Active Substance: RACECADOTRIL
     Indication: DIARRHOEA
     Route: 048
     Dates: start: 20170426, end: 20170426
  41. RED BLOOD CELLS [Concomitant]
     Active Substance: HUMAN RED BLOOD CELL
     Indication: ANAEMIA
     Route: 042
     Dates: start: 20170419, end: 20170419
  42. PLATELETS [Concomitant]
     Active Substance: HUMAN PLATELET, ALLOGENIC
     Route: 042
     Dates: start: 20170531, end: 20170531
  43. PLITICAN [Concomitant]
     Active Substance: ALIZAPRIDE HYDROCHLORIDE
     Route: 042
     Dates: start: 20170527, end: 20170527
  44. LEDERFOLINE [Concomitant]
     Active Substance: LEUCOVORIN CALCIUM
     Indication: FOLATE DEFICIENCY
     Route: 048
     Dates: start: 20170525, end: 20170530
  45. HYDROCORTISONE. [Concomitant]
     Active Substance: HYDROCORTISONE
     Route: 042
     Dates: start: 20170602, end: 20170602
  46. LOPERAMIDE [Concomitant]
     Active Substance: LOPERAMIDE
     Route: 048
     Dates: start: 20170424, end: 20170424
  47. RED BLOOD CELLS [Concomitant]
     Active Substance: HUMAN RED BLOOD CELL
     Route: 042
     Dates: start: 20170523, end: 20170523
  48. TAVANIC [Concomitant]
     Active Substance: LEVOFLOXACIN
     Indication: PRODUCT USED FOR UNKNOWN INDICATION
     Route: 042
     Dates: start: 20170526, end: 20170526

REACTIONS (5)
  - Bronchopulmonary aspergillosis [Recovered/Resolved]
  - Febrile neutropenia [Recovered/Resolved]
  - Pneumocystis jirovecii pneumonia [Recovered/Resolved]
  - Febrile neutropenia [Recovered/Resolved]
  - Neutropenia [Recovered/Resolved]

NARRATIVE: CASE EVENT DATE: 20170424
